FAERS Safety Report 23566473 (Version 1)
Quarter: 2024Q1

REPORT INFORMATION
  Report Type: Spontaneous
  Country: US (occurrence: US)
  Receive Date: 20240226
  Receipt Date: 20240226
  Transmission Date: 20240409
  Serious: No
  Sender: FDA-Public Use
  Company Number: US-AMNEAL PHARMACEUTICALS-2023-AMRX-00223

PATIENT
  Sex: Female
  Weight: 81.633 kg

DRUGS (1)
  1. RYTARY [Suspect]
     Active Substance: CARBIDOPA\LEVODOPA
     Indication: Product used for unknown indication
     Route: 048

REACTIONS (3)
  - Bradykinesia [Recovered/Resolved]
  - Freezing phenomenon [Recovered/Resolved]
  - Nervousness [Recovered/Resolved]
